FAERS Safety Report 14783641 (Version 2)
Quarter: 2018Q4

REPORT INFORMATION
  Report Type: Report from Study
  Country: CA (occurrence: CA)
  Receive Date: 20180420
  Receipt Date: 20181005
  Transmission Date: 20190204
  Serious: Yes (Hospitalization, Other)
  Sender: FDA-Public Use
  Company Number: CA-JNJFOC-20180423079

PATIENT
  Age: 14 Year
  Sex: Male
  Weight: 50 kg

DRUGS (2)
  1. REMICADE [Suspect]
     Active Substance: INFLIXIMAB
     Indication: CROHN^S DISEASE
     Dosage: STRENGTH = 100 MG
     Route: 042
     Dates: start: 20111122, end: 2018
  2. REMICADE [Suspect]
     Active Substance: INFLIXIMAB
     Indication: CROHN^S DISEASE
     Dosage: RELOADING DOSE
     Route: 042
     Dates: start: 201809

REACTIONS (2)
  - Crohn^s disease [Unknown]
  - Colectomy [Unknown]

NARRATIVE: CASE EVENT DATE: 201805
